FAERS Safety Report 6409543-2 (Version None)
Quarter: 2009Q4

REPORT INFORMATION
  Report Type: 
  Country: None (occurrence: None)
  Receive Date: 20091022
  Receipt Date: 20091014
  Transmission Date: 20100525
  Serious: Yes (Hospitalization)
  Sender: FDA-Public Use
  Company Number: DE-ELI_LILLY_AND_COMPANY-DE200910003135

PATIENT
  Sex: Male

DRUGS (10)
  1. HUMULIN R [Suspect]
     Indication: DIABETES MELLITUS
     Dosage: UNK, UNKNOWN
     Route: 058
  2. PLAVIX [Concomitant]
     Dosage: UNK, UNKNOWN
  3. ASPIRIN [Concomitant]
     Dosage: UNK, UNKNOWN
  4. AXURA [Concomitant]
     Dosage: UNK, UNKNOWN
  5. SIMVAHEXAL [Concomitant]
     Dosage: UNK, UNKNOWN
  6. RANITIDINE HCL [Concomitant]
     Dosage: UNK, UNKNOWN
  7. LEGALON [Concomitant]
     Dosage: UNK, UNKNOWN
  8. PENTAERYTHRITOL TETRANITRATE [Concomitant]
     Dosage: UNK, UNKNOWN
  9. TAMSUBLOCK [Concomitant]
     Dosage: UNK, UNKNOWN
  10. TETRAZEPAM [Concomitant]
     Dosage: UNK, UNKNOWN

REACTIONS (2)
  - BLOOD GLUCOSE INCREASED [None]
  - CARDIAC DISORDER [None]
